FAERS Safety Report 5205611-1 (Version None)
Quarter: 2007Q1

REPORT INFORMATION
  Report Type: 
  Country: None (occurrence: None)
  Receive Date: 20070108
  Receipt Date: 20061226
  Transmission Date: 20070707
  Serious: No
  Sender: FDA-Public Use
  Company Number: 009608

PATIENT
  Age: 18 Year
  Sex: Male
  Weight: 78 kg

DRUGS (3)
  1. CLARAVIS [Suspect]
     Indication: ACNE
     Dosage: 40 MG, BID,  ORAL; 40 MG, QD, ORAL
     Route: 048
     Dates: start: 20061212, end: 20061222
  2. CLARAVIS [Suspect]
     Indication: ACNE
     Dosage: 40 MG, BID,  ORAL; 40 MG, QD, ORAL
     Route: 048
     Dates: start: 20061223
  3. VICODIN [Suspect]
     Indication: PAIN
     Dosage: TABLET, ORAL
     Route: 048
     Dates: start: 20061220, end: 20061220

REACTIONS (12)
  - ABDOMINAL PAIN [None]
  - ABDOMINAL PAIN UPPER [None]
  - ACNE [None]
  - DRY SKIN [None]
  - ERYTHEMA [None]
  - FACIAL PAIN [None]
  - FURUNCLE [None]
  - HAND FRACTURE [None]
  - MOOD SWINGS [None]
  - PRURITUS [None]
  - SKIN CHAPPED [None]
  - SWELLING FACE [None]
